FAERS Safety Report 23521210 (Version 1)
Quarter: 2024Q1

REPORT INFORMATION
  Report Type: 
  Country: None (occurrence: None)
  Receive Date: 20240214
  Receipt Date: 20240214
  Transmission Date: 20240409
  Serious: No
  Sender: FDA-Public Use
  Company Number: DE-ROCHE-2231540

PATIENT

DRUGS (12)
  1. OCREVUS [Suspect]
     Active Substance: OCRELIZUMAB
     Dosage: 300 MG AT ONCE IN 12 DAYS (300 MG)
     Dates: start: 20181207, end: 20200616
  2. OCREVUS [Suspect]
     Active Substance: OCRELIZUMAB
  3. OCREVUS [Suspect]
     Active Substance: OCRELIZUMAB
     Dates: start: 20191216
  4. OCREVUS [Suspect]
     Active Substance: OCRELIZUMAB
     Dates: start: 20200616, end: 20200616
  5. CORTISONE [Suspect]
     Active Substance: CORTISONE
  6. INSULIN NOS [Concomitant]
     Active Substance: INSULIN NOS
     Dosage: 5-6 IU IN THE MORNING
  7. INSULIN NOS [Concomitant]
     Active Substance: INSULIN NOS
     Dosage: THROUGHOUT THE DAY
  8. CIPRALEX [Concomitant]
     Active Substance: ESCITALOPRAM OXALATE
  9. PANTOPRAZOLE SODIUM [Concomitant]
     Active Substance: PANTOPRAZOLE SODIUM
  10. LEVOTHYROXINE SODIUM [Concomitant]
     Active Substance: LEVOTHYROXINE SODIUM
  11. CITALOPRAM [Concomitant]
     Active Substance: CITALOPRAM HYDROBROMIDE
     Dosage: 1-0-0
  12. TRIMIPRAMINE [Concomitant]
     Active Substance: TRIMIPRAMINE

REACTIONS (20)
  - Noninfective encephalitis [None]
  - Diabetes mellitus inadequate control [None]
  - Blood glucose increased [None]
  - Off label use [None]
  - Nasopharyngitis [None]
  - Dizziness [None]
  - Arthralgia [None]
  - Blood glucose decreased [None]
  - Meniscus injury [None]
  - Haematochezia [None]
  - White blood cell count decreased [None]
  - Initial insomnia [None]
  - Middle insomnia [None]
  - Sleep talking [None]
  - Large intestine polyp [None]
  - Fall [None]
  - Bone contusion [None]
  - Contusion [None]
  - Gait disturbance [None]
  - Intervertebral disc protrusion [None]

NARRATIVE: CASE EVENT DATE: 20181207
